FAERS Safety Report 18980603 (Version 1)
Quarter: 2021Q1

REPORT INFORMATION
  Report Type: Spontaneous
  Country: US (occurrence: US)
  Receive Date: 20210307
  Receipt Date: 20210307
  Transmission Date: 20210420
  Serious: Yes (Death)
  Sender: FDA-Public Use
  Company Number: None

PATIENT
  Age: 99 Year
  Sex: Female
  Weight: 37.8 kg

DRUGS (6)
  1. CARDIZEM [Concomitant]
     Active Substance: DILTIAZEM HYDROCHLORIDE
  2. ALPRAZOLAM. [Suspect]
     Active Substance: ALPRAZOLAM
     Indication: ANXIETY
     Dosage: ?          QUANTITY:1 TABLET(S);?
     Route: 048
     Dates: start: 19950501, end: 20200624
  3. CARBONYL IRON [Concomitant]
     Active Substance: IRON
  4. VITAMIN B12 [Concomitant]
     Active Substance: CYANOCOBALAMIN
  5. ALPRAZOLAM. [Suspect]
     Active Substance: ALPRAZOLAM
     Indication: DRUG DEPENDENCE
     Dosage: ?          QUANTITY:1 TABLET(S);?
     Route: 048
     Dates: start: 19950501, end: 20200624
  6. VITAMIN D 2000 IU [Concomitant]

REACTIONS (17)
  - Restless legs syndrome [None]
  - Decreased appetite [None]
  - Respiratory rate increased [None]
  - Withdrawal syndrome [None]
  - Abdominal pain upper [None]
  - Hyperaesthesia [None]
  - Dysstasia [None]
  - Confusional state [None]
  - Insomnia [None]
  - Dysarthria [None]
  - Anxiety [None]
  - Bruxism [None]
  - Malaise [None]
  - Gait inability [None]
  - Akathisia [None]
  - Muscular weakness [None]
  - Paralysis [None]

NARRATIVE: CASE EVENT DATE: 20200601
